FAERS Safety Report 12856565 (Version 1)
Quarter: 2016Q4

REPORT INFORMATION
  Report Type: Report from Study
  Country: DE (occurrence: DE)
  Receive Date: 20161018
  Receipt Date: 20161018
  Transmission Date: 20170207
  Serious: Yes (Hospitalization, Other)
  Sender: FDA-Public Use
  Company Number: PHHY2016DE101086

PATIENT
  Sex: Female
  Weight: 80 kg

DRUGS (3)
  1. VIGANTOLETTEN [Concomitant]
     Active Substance: CHOLECALCIFEROL
     Indication: OSTEOPOROSIS PROPHYLAXIS
     Dosage: 1000 IU, QD (IN THE MORNING)
     Route: 065
     Dates: start: 20160722
  2. GILENYA [Suspect]
     Active Substance: FINGOLIMOD HYDROCHLORIDE
     Indication: RELAPSING-REMITTING MULTIPLE SCLEROSIS
     Dosage: 0.5 MG, QD
     Route: 048
     Dates: start: 20160331, end: 20160720
  3. CALCIUM [Concomitant]
     Active Substance: CALCIUM
     Indication: OSTEOPOROSIS PROPHYLAXIS
     Dosage: 500 MG, BID (IN THE MORNING AND NIGHT)
     Route: 065
     Dates: start: 20160722

REACTIONS (22)
  - Muscular weakness [Not Recovered/Not Resolved]
  - Paresis [Unknown]
  - Sensory disturbance [Unknown]
  - Adjustment disorder with anxiety [Unknown]
  - Restlessness [Unknown]
  - Gait disturbance [Unknown]
  - Paraesthesia [Unknown]
  - Arthropathy [Unknown]
  - Tremor [Unknown]
  - Mobility decreased [Unknown]
  - Asthenia [Recovering/Resolving]
  - Agitated depression [Unknown]
  - Hypoaesthesia [Unknown]
  - Hyperaesthesia [Unknown]
  - Dysstasia [Unknown]
  - Myasthenia gravis [Not Recovered/Not Resolved]
  - Upper motor neurone lesion [Unknown]
  - Visual impairment [Unknown]
  - Clonus [Unknown]
  - Dysmetria [Unknown]
  - Hyperreflexia [Unknown]
  - Ataxia [Unknown]

NARRATIVE: CASE EVENT DATE: 20160712
